FAERS Safety Report 23687869 (Version 1)
Quarter: 2024Q1

REPORT INFORMATION
  Report Type: Spontaneous
  Country: US (occurrence: None)
  Receive Date: 20240329
  Receipt Date: 20240329
  Transmission Date: 20240410
  Serious: Yes (Other)
  Sender: FDA-Public Use
  Company Number: None

PATIENT
  Age: 71 Year
  Sex: Female
  Weight: 63 kg

DRUGS (10)
  1. TRIAMCINOLONE ACETONIDE [Suspect]
     Active Substance: TRIAMCINOLONE ACETONIDE
     Indication: Bone density abnormal
     Dosage: OTHER QUANTITY : 2 INJECTION(S);?FREQUENCY : AS NEEDED;?
     Route: 058
     Dates: start: 20240207, end: 20240207
  2. EVENITY [Suspect]
     Active Substance: ROMOSOZUMAB-AQQG
  3. LIDOCAINE [Suspect]
     Active Substance: LIDOCAINE
  4. SUMATRIPTAN [Concomitant]
     Active Substance: SUMATRIPTAN
  5. PROMETHAZINE [Concomitant]
     Active Substance: PROMETHAZINE HYDROCHLORIDE
  6. LEXAPRO [Concomitant]
     Active Substance: ESCITALOPRAM OXALATE
  7. ZOLPIDEM [Concomitant]
     Active Substance: ZOLPIDEM TARTRATE
  8. ESTRADIOL [Concomitant]
     Active Substance: ESTRADIOL
  9. ATORVASTATIN [Concomitant]
     Active Substance: ATORVASTATIN
  10. VITAMIN D [Concomitant]
     Active Substance: VITAMIN D NOS

REACTIONS (4)
  - Rash [None]
  - Therapeutic product effect decreased [None]
  - Pruritus [None]
  - Product formulation issue [None]

NARRATIVE: CASE EVENT DATE: 20240217
